FAERS Safety Report 4903899-5 (Version None)
Quarter: 2006Q1

REPORT INFORMATION
  Report Type: 
  Country: None (occurrence: None)
  Receive Date: 20060208
  Receipt Date: 20050722
  Transmission Date: 20060701
  Serious: Yes (Hospitalization)
  Sender: FDA-Public Use
  Company Number: US-GLAXOSMITHKLINE-A0567260A

PATIENT
  Age: 58 Year
  Sex: Female

DRUGS (3)
  1. PAXIL [Suspect]
     Indication: DEPRESSION
     Dosage: 40MG PER DAY
     Route: 048
  2. UNKNOWN DRUG [Concomitant]
  3. PLAVIX [Concomitant]

REACTIONS (3)
  - LOSS OF LIBIDO [None]
  - PANIC ATTACK [None]
  - WEIGHT INCREASED [None]
